FAERS Safety Report 23710609 (Version 3)
Quarter: 2024Q2

REPORT INFORMATION
  Report Type: Report from Study
  Country: US (occurrence: US)
  Receive Date: 20240405
  Receipt Date: 20240611
  Transmission Date: 20240715
  Serious: No
  Sender: FDA-Public Use
  Company Number: US-002147023-NVSC2024US071982

PATIENT
  Sex: Female

DRUGS (1)
  1. KESIMPTA [Suspect]
     Active Substance: OFATUMUMAB
     Indication: Multiple sclerosis
     Dosage: 20 MG, QMO
     Route: 058

REACTIONS (7)
  - Nasopharyngitis [Unknown]
  - Nasal congestion [Unknown]
  - Illness [Unknown]
  - Pain in extremity [Unknown]
  - Pyrexia [Unknown]
  - Rhinorrhoea [Unknown]
  - Fatigue [Unknown]
